FAERS Safety Report 16465515 (Version 1)
Quarter: 2019Q2

REPORT INFORMATION
  Report Type: Spontaneous
  Country: US (occurrence: US)
  Receive Date: 20190621
  Receipt Date: 20190621
  Transmission Date: 20190711
  Serious: No
  Sender: FDA-Public Use
  Company Number: US-EGALET US INC-US-2018EGA000462

PATIENT

DRUGS (1)
  1. SPRIX [Suspect]
     Active Substance: KETOROLAC TROMETHAMINE
     Indication: PAIN
     Dosage: 1 SPRAY NASALLY 4 TIMES A DAY FOR 5 DAYS
     Route: 045
     Dates: start: 20180614, end: 20180622

REACTIONS (3)
  - Nasal discomfort [Unknown]
  - Nasal congestion [Unknown]
  - Oral pain [Unknown]

NARRATIVE: CASE EVENT DATE: 201806
